FAERS Safety Report 5528094-0 (Version None)
Quarter: 2007Q4

REPORT INFORMATION
  Report Type: 
  Country: None (occurrence: None)
  Receive Date: 20071128
  Receipt Date: 20071114
  Transmission Date: 20080405
  Serious: Yes (Death, Other)
  Sender: FDA-Public Use
  Company Number: GB-RANBAXY-2007RR-10863

PATIENT

DRUGS (11)
  1. CEFUROXIME AXETIL RANBAXY 125 MG TABLETTEN [Suspect]
  2. FRUSEMIDE [Suspect]
     Indication: CARDIAC FAILURE
     Dosage: 120 MG, UNK
     Dates: end: 20070731
  3. ADCAL-D3 [Concomitant]
     Dosage: 1 DF, BID
  4. BECLOMETHASONE DIPROPIONATE [Concomitant]
     Dosage: 200 UG, UNK
  5. CO-CODAMOL [Concomitant]
     Dosage: 2 DF, TID
  6. FLUOXETINE [Concomitant]
     Dosage: 20 MG, QD
  7. GAVISCON [Concomitant]
     Dosage: 10 ML, PRN
  8. MOVICOL [Concomitant]
     Dosage: UNK
  9. SALBUTAMOL TABLETS BP 2MG [Concomitant]
     Dosage: 2 DF, PRN
  10. SENNA [Concomitant]
     Dosage: UNK
     Route: 048
  11. TOLTERODINE TARTRATE [Concomitant]
     Dosage: 2 MG, BID

REACTIONS (4)
  - CLOSTRIDIUM DIFFICILE COLITIS [None]
  - HYPOKALAEMIA [None]
  - METABOLIC ACIDOSIS [None]
  - URINARY TRACT INFECTION [None]
